FAERS Safety Report 22716827 (Version 5)
Quarter: 2023Q4

REPORT INFORMATION
  Report Type: Spontaneous
  Country: US (occurrence: US)
  Receive Date: 20230718
  Receipt Date: 20231108
  Transmission Date: 20240110
  Serious: No
  Sender: FDA-Public Use
  Company Number: US-ABBVIE-5327346

PATIENT
  Sex: Female

DRUGS (2)
  1. CYCLOSPORINE [Suspect]
     Active Substance: CYCLOSPORINE
     Indication: Product used for unknown indication
     Dosage: 2 DROPS IN BOTH EYES DAILY  0.05% UNIT DOSE; FORM STRENGTH: 0.5MG/ML?DOSE FORM- OPHTHALMIC EMULSION
     Route: 047
     Dates: end: 20230707
  2. CYCLOSPORINE [Suspect]
     Active Substance: CYCLOSPORINE
     Dosage: 2 DROPS IN BOTH EYES DAILY  0.05% UNIT DOSE; FORM STRENGTH: 0.5MG/ML?DOSE FORM- OPHTHALMIC EMULSION
     Route: 047
     Dates: start: 202307

REACTIONS (3)
  - Drug ineffective [Unknown]
  - Dry eye [Unknown]
  - Eye irritation [Unknown]
